FAERS Safety Report 9473252 (Version 1)
Quarter: 2013Q3

REPORT INFORMATION
  Report Type: Spontaneous
  Country: US (occurrence: None)
  Receive Date: 20130820
  Receipt Date: 20130820
  Transmission Date: 20140515
  Serious: Yes (Other)
  Sender: FDA-Public Use
  Company Number: IPC201308-000328

PATIENT
  Sex: Female
  Weight: 88.45 kg

DRUGS (5)
  1. HYDROXYCHLOROQUINE SULFATE [Suspect]
     Indication: SYSTEMIC LUPUS ERYTHEMATOSUS
  2. PREDNISONE [Suspect]
     Indication: URTICARIA
     Dosage: INITIAL
  3. ULTRAM [Suspect]
     Indication: PAIN
     Dosage: 1-2 DF EVERY 4 HOURS AS NEEDED
  4. PHENERGAN [Suspect]
     Indication: NAUSEA
     Dosage: 50-100 MG, ONCE A DAY (DIVIDED IN 2 DOSES)
  5. PROTONIX [Concomitant]

REACTIONS (9)
  - Diarrhoea [None]
  - Migraine [None]
  - Diabetes mellitus [None]
  - Disturbance in attention [None]
  - Fatigue [None]
  - Weight increased [None]
  - Decreased appetite [None]
  - Insomnia [None]
  - Weight decreased [None]
